FAERS Safety Report 7581853-5 (Version None)
Quarter: 2011Q2

REPORT INFORMATION
  Report Type: 
  Country: None (occurrence: None)
  Receive Date: 20110629
  Receipt Date: 20110602
  Transmission Date: 20111010
  Serious: Yes (Other)
  Sender: FDA-Public Use
  Company Number: BR-BAYER-2011-047959

PATIENT
  Sex: Male

DRUGS (8)
  1. CATAFLAM [Suspect]
     Indication: OROPHARYNGEAL PAIN
  2. CATAFLAM [Suspect]
     Indication: HEADACHE
  3. ASPIRIN [Suspect]
     Indication: OROPHARYNGEAL PAIN
  4. ASPIRIN [Suspect]
     Indication: DIZZINESS
     Dosage: UNK
     Route: 048
     Dates: start: 20110519, end: 20110101
  5. ASPIRIN [Suspect]
     Indication: HEADACHE
  6. CATAFLAM [Suspect]
     Indication: DIZZINESS
     Dosage: 1 DF, TID
     Route: 048
     Dates: start: 20110519, end: 20110520
  7. CARDURA [Concomitant]
     Indication: PRODUCT USED FOR UNKNOWN INDICATION
     Dosage: 4 MG, QD
     Route: 048
     Dates: start: 20110512, end: 20110519
  8. CARDURA [Concomitant]
     Dosage: 1 DF, QOD
     Route: 048
     Dates: start: 20110526

REACTIONS (1)
  - DIARRHOEA HAEMORRHAGIC [None]
